FAERS Safety Report 12374806 (Version 4)
Quarter: 2016Q3

REPORT INFORMATION
  Report Type: Spontaneous
  Country: US (occurrence: US)
  Receive Date: 20160517
  Receipt Date: 20160908
  Transmission Date: 20161109
  Serious: No
  Sender: FDA-Public Use
  Company Number: US-PFIZER INC-2016249587

PATIENT
  Age: 64 Year
  Sex: Female
  Weight: 83.9 kg

DRUGS (17)
  1. ESCITALOPRAM [Concomitant]
     Active Substance: ESCITALOPRAM OXALATE
     Indication: NERVE INJURY
     Dosage: 20 MG, DAILY  (ONE TABLET BY MOUTH DAILY)
     Route: 048
  2. XGEVA [Concomitant]
     Active Substance: DENOSUMAB
     Indication: BONE DISORDER
     Dosage: DOSE UNKNOWN ONCE A MONTH INJECTION
     Dates: start: 201404
  3. LETROZOLE. [Suspect]
     Active Substance: LETROZOLE
     Indication: BREAST CANCER METASTATIC
     Dosage: 2.5MG ONCE A DAY
     Route: 048
     Dates: start: 20160413
  4. IBRANCE [Suspect]
     Active Substance: PALBOCICLIB
     Indication: BREAST CANCER METASTATIC
     Dosage: 125MG ONCE A DAY FOR 21 DAYS
     Route: 048
     Dates: start: 20160420
  5. CALCIUM CITRATE WITH VITAMIN D [Concomitant]
     Active Substance: CALCIUM CITRATE\VITAMIN D
     Indication: SUPPLEMENTATION THERAPY
     Dosage: ONE CAPSULE BY MOUTH DAILY (CALCIUM CITRATE 1000MG/COLECALCIFEROL 400IU)
     Route: 048
     Dates: start: 2016
  6. VITAMIN D3 [Concomitant]
     Active Substance: CHOLECALCIFEROL
     Indication: SUPPLEMENTATION THERAPY
     Dosage: 5000 IU ONCE A DAY (ONE SOFT GEL BY MOUTH DAILY)
     Route: 048
     Dates: start: 201204
  7. LETROZOLE. [Suspect]
     Active Substance: LETROZOLE
     Dosage: 2.5 MG, DAILY (ONE TABLET BY MOUTH DAILY)
     Route: 048
     Dates: start: 20160413
  8. DOXYCYCLINE HYCLATE. [Concomitant]
     Active Substance: DOXYCYCLINE HYCLATE
     Indication: GINGIVITIS
     Dosage: 20MG TWICE A DAY
     Route: 048
     Dates: start: 201204
  9. METHYL B 12 [Concomitant]
     Dosage: 1000MCG ONCE A DAY CHEWABLE
     Route: 048
     Dates: start: 201604
  10. METFORMIN [Concomitant]
     Active Substance: METFORMIN HYDROCHLORIDE
     Indication: DIABETES MELLITUS
     Dosage: 500 MG, 2X/DAY
     Route: 048
     Dates: start: 201204
  11. ESCITALOPRAM [Concomitant]
     Active Substance: ESCITALOPRAM OXALATE
     Indication: NEUROPATHY PERIPHERAL
     Dosage: 20MG ONCE A DAY
     Route: 048
     Dates: start: 201411
  12. METHYL B 12 [Concomitant]
     Indication: SUPPLEMENTATION THERAPY
     Dosage: 1000 UG, DAILY (ONE TABLET BY MOUTH DAILY)
     Route: 048
     Dates: start: 201601
  13. IBRANCE [Suspect]
     Active Substance: PALBOCICLIB
     Dosage: 125 MG, DAILY (ONE CAPSULE BY MOUTH DAILY FOR 21 DAYS, AND THEN SEVEN DAYS OFF)
     Route: 048
     Dates: start: 20160420
  14. IBRANCE [Suspect]
     Active Substance: PALBOCICLIB
     Dosage: 125 MG, FOR 21 DAYS
  15. GLIPIZIDE. [Concomitant]
     Active Substance: GLIPIZIDE
     Indication: DIABETES MELLITUS
     Dosage: 5MG TWICE A DAY
     Route: 048
     Dates: start: 201504
  16. LISINOPRIL AND HYDROCHLOROTHIAZIDE [Concomitant]
     Active Substance: HYDROCHLOROTHIAZIDE\LISINOPRIL
     Indication: HYPERTENSION
     Dosage: [LISINOPRIL, 10MG/HYDROCHLOROTHIAZIDE, 12.5MG] 1 TABLET A DAY
     Route: 048
     Dates: start: 201204
  17. VITAMIN B12 [Concomitant]
     Active Substance: CYANOCOBALAMIN
     Indication: SUPPLEMENTATION THERAPY
     Dosage: INJECTION ONCE A WEEK DOSE UNKNOWN
     Dates: start: 201204

REACTIONS (1)
  - Full blood count decreased [Not Recovered/Not Resolved]

NARRATIVE: CASE EVENT DATE: 20160505
